FAERS Safety Report 17454709 (Version 3)
Quarter: 2020Q1

REPORT INFORMATION
  Report Type: Spontaneous
  Country: BR (occurrence: BR)
  Receive Date: 20200225
  Receipt Date: 20200320
  Transmission Date: 20200409
  Serious: Yes (Other)
  Sender: FDA-Public Use
  Company Number: BR-ROCHE-2554233

PATIENT
  Sex: Female

DRUGS (3)
  1. DELLER [DESVENLAFAXINE SUCCINATE] [Suspect]
     Active Substance: DESVENLAFAXINE SUCCINATE
     Indication: PRODUCT USED FOR UNKNOWN INDICATION
     Dosage: 6 DROPS A DAY
     Route: 065
  2. RIVOTRIL [Suspect]
     Active Substance: CLONAZEPAM
     Indication: INSOMNIA
     Dosage: 12 DROPS A DAY
     Route: 048
  3. RIVOTRIL [Suspect]
     Active Substance: CLONAZEPAM
     Dosage: 6 DROPS A DAY
     Route: 048
     Dates: start: 20200218

REACTIONS (7)
  - Intentional product use issue [Unknown]
  - Nausea [Recovered/Resolved]
  - Arrhythmia [Recovering/Resolving]
  - Hypoaesthesia oral [Not Recovered/Not Resolved]
  - Chills [Unknown]
  - Off label use [Unknown]
  - Product administration error [Unknown]
